FAERS Safety Report 15334836 (Version 1)
Quarter: 2018Q4

REPORT INFORMATION
  Report Type: Spontaneous
  Country: DK (occurrence: DK)
  Receive Date: 20180830
  Receipt Date: 20180830
  Transmission Date: 20190204
  Serious: Yes (Life-Threatening, Hospitalization)
  Sender: FDA-Public Use
  Company Number: DK-TEVA-2018-DK-949563

PATIENT
  Age: 85 Year
  Sex: Female
  Weight: 81 kg

DRUGS (1)
  1. LOSARTANKALIUM/HYDROCHLORTHIAZID TEVA [Suspect]
     Active Substance: HYDROCHLOROTHIAZIDE\LOSARTAN POTASSIUM
     Indication: HYPERTENSION
     Dosage: 1 DOSAGE FORMS DAILY; STYRKE: 50 + 12,5 MG
     Route: 048
     Dates: end: 20180703

REACTIONS (2)
  - Malignant melanoma [Recovered/Resolved]
  - Eye excision [Recovered/Resolved]

NARRATIVE: CASE EVENT DATE: 20180601
